FAERS Safety Report 5527434-6 (Version None)
Quarter: 2007Q4

REPORT INFORMATION
  Report Type: 
  Country: None (occurrence: None)
  Receive Date: 20071123
  Receipt Date: 20071114
  Transmission Date: 20080405
  Serious: Yes (Other)
  Sender: FDA-Public Use
  Company Number: 230324J07USA

PATIENT
  Age: 57 Year
  Sex: Female
  Weight: 70.3075 kg

DRUGS (2)
  1. REBIF [Suspect]
     Indication: MULTIPLE SCLEROSIS
     Dosage: 44 MCG, 3 IN 1 WEEKS, SUBCUTANEOUS
     Route: 058
     Dates: start: 20070924
  2. BACLOFEN [Concomitant]

REACTIONS (9)
  - ABDOMINAL PAIN UPPER [None]
  - ANXIETY [None]
  - BLOOD PRESSURE INCREASED [None]
  - DIARRHOEA [None]
  - FATIGUE [None]
  - HYPERTENSION [None]
  - LOSS OF CONSCIOUSNESS [None]
  - TINNITUS [None]
  - VOMITING [None]
